FAERS Safety Report 15566547 (Version 1)
Quarter: 2018Q4

REPORT INFORMATION
  Report Type: Report from Study
  Country: IT (occurrence: IT)
  Receive Date: 20181030
  Receipt Date: 20181030
  Transmission Date: 20190205
  Serious: Yes (Hospitalization)
  Sender: FDA-Public Use
  Company Number: IT-TEVA-2018-IT-969532

PATIENT
  Age: 37 Year
  Sex: Male

DRUGS (5)
  1. LORAZEPAM. [Suspect]
     Active Substance: LORAZEPAM
     Indication: SUICIDE ATTEMPT
     Dosage: 40 DOSAGE FORMS DAILY;
     Route: 048
     Dates: start: 20180922, end: 20180923
  2. STILNOX [Concomitant]
     Active Substance: ZOLPIDEM TARTRATE
     Route: 065
  3. CARBOLITHIUM 150 MG CAPSULE RIGIDE [Concomitant]
     Active Substance: LITHIUM CARBONATE
     Route: 065
  4. BRINTELLIX 5 MG FILM-COATED TABLETS [Concomitant]
     Route: 065
  5. SEROQUEL [Concomitant]
     Active Substance: QUETIAPINE FUMARATE
     Route: 065

REACTIONS (3)
  - Sopor [Recovered/Resolved]
  - Suicide attempt [Recovered/Resolved]
  - Drug abuse [Recovered/Resolved]

NARRATIVE: CASE EVENT DATE: 20180923
